FAERS Safety Report 7381530-X (Version None)
Quarter: 2011Q1

REPORT INFORMATION
  Report Type: 
  Country: None (occurrence: None)
  Receive Date: 20110329
  Receipt Date: 20110323
  Transmission Date: 20110831
  Serious: Yes (Hospitalization)
  Sender: FDA-Public Use
  Company Number: US-ELI_LILLY_AND_COMPANY-US201103007036

PATIENT
  Sex: Male
  Weight: 94.7 kg

DRUGS (16)
  1. ASPIRIN [Concomitant]
     Indication: CARDIOVASCULAR EVENT PROPHYLAXIS
     Dosage: 325 MG, QD
     Route: 048
     Dates: start: 20101226
  2. PEMETREXED [Suspect]
     Indication: NON-SMALL CELL LUNG CANCER STAGE IV
     Dosage: 500 MG/M2, EVERY 21 DAYS
     Route: 042
     Dates: start: 20110221
  3. CARBOPLATIN [Suspect]
     Indication: NON-SMALL CELL LUNG CANCER STAGE IV
     Dosage: 6 AUC, EVERY 21 DAYS
     Route: 042
     Dates: start: 20110221
  4. NAPROSYN [Concomitant]
     Indication: PAIN
     Dosage: 650 MG, PRN
     Route: 048
     Dates: start: 20110214
  5. ZOLEDRONIC ACID [Concomitant]
     Indication: METASTASES TO BONE
     Dosage: 4 MG, EVERY 6 WEEKS
     Route: 042
     Dates: start: 20110221
  6. VITAMIN B-12 [Concomitant]
     Indication: SUPPLEMENTATION THERAPY
     Dosage: UNK
     Dates: start: 20110215
  7. AMBIEN [Concomitant]
     Indication: INSOMNIA
     Dosage: 10 MG, PRN
     Route: 048
     Dates: start: 20110315
  8. AVELOX [Concomitant]
     Indication: PNEUMONIA
     Dosage: UNK
     Dates: start: 20110301, end: 20110322
  9. FISH OIL [Concomitant]
     Indication: SUPPLEMENTATION THERAPY
     Dosage: 1200 MG, QD
     Route: 048
     Dates: start: 20101228
  10. FOLIC ACID [Concomitant]
     Indication: SUPPLEMENTATION THERAPY
     Dosage: 400 MG, QD
     Route: 048
     Dates: start: 20110214
  11. PERCOCET [Concomitant]
     Indication: CHEST PAIN
     Dosage: 7.5 MG, PRN
     Route: 048
     Dates: start: 20110107
  12. PRILOSEC [Concomitant]
     Indication: GASTROOESOPHAGEAL REFLUX DISEASE
     Dosage: 20 MG, PRN
     Route: 048
     Dates: start: 20101228
  13. VENTOLIN HFA [Concomitant]
     Indication: DYSPNOEA
     Dosage: 90 MG, PRN
     Route: 055
     Dates: start: 20110114
  14. OXYCONTIN [Concomitant]
     Indication: MUSCULOSKELETAL CHEST PAIN
     Dosage: 20 MG, BID
     Dates: start: 20110222, end: 20110315
  15. OXYCONTIN [Concomitant]
     Dosage: 20 MG, TID
     Route: 048
     Dates: start: 20110315
  16. ONDANSETRON [Concomitant]
     Indication: NAUSEA
     Dosage: 4 MG, PRN
     Route: 048
     Dates: start: 20110222

REACTIONS (3)
  - PNEUMONIA [None]
  - DEHYDRATION [None]
  - HYPOTENSION [None]
